FAERS Safety Report 16736637 (Version 2)
Quarter: 2019Q3

REPORT INFORMATION
  Report Type: Report from Study
  Country: US (occurrence: US)
  Receive Date: 20190823
  Receipt Date: 20190904
  Transmission Date: 20191005
  Serious: No
  Sender: FDA-Public Use
  Company Number: US-ASTRAZENECA-2019SF08161

PATIENT
  Age: 66 Year
  Sex: Female
  Weight: 99.8 kg

DRUGS (2)
  1. METFORMIN [Concomitant]
     Active Substance: METFORMIN HYDROCHLORIDE
     Indication: TYPE 2 DIABETES MELLITUS
  2. BYDUREON BCISE [Suspect]
     Active Substance: EXENATIDE
     Indication: TYPE 2 DIABETES MELLITUS
     Route: 058

REACTIONS (5)
  - Urinary tract infection [Recovered/Resolved]
  - Circumstance or information capable of leading to medication error [Unknown]
  - Injection site haemorrhage [Unknown]
  - Injection site pain [Unknown]
  - Device issue [Unknown]

NARRATIVE: CASE EVENT DATE: 2019
